FAERS Safety Report 9426092 (Version 2)
Quarter: 2013Q3

REPORT INFORMATION
  Report Type: Spontaneous
  Country: US (occurrence: US)
  Receive Date: 20130730
  Receipt Date: 20130920
  Transmission Date: 20140515
  Serious: Yes (Other)
  Sender: FDA-Public Use
  Company Number: US-BIOGENIDEC-2013BI065634

PATIENT
  Age: 51 Year
  Sex: Female

DRUGS (3)
  1. TECFIDERA [Suspect]
     Indication: MULTIPLE SCLEROSIS
     Route: 048
     Dates: start: 20130711
  2. KEPPRA [Concomitant]
     Indication: CONVULSION
     Route: 048
  3. DILANTIN [Concomitant]
     Indication: CONVULSION
     Route: 048

REACTIONS (2)
  - Convulsion [Not Recovered/Not Resolved]
  - Central nervous system lesion [Unknown]
